FAERS Safety Report 11881161 (Version 1)
Quarter: 2015Q4

REPORT INFORMATION
  Report Type: Spontaneous
  Country: FR (occurrence: FR)
  Receive Date: 20151231
  Receipt Date: 20151231
  Transmission Date: 20160305
  Serious: Yes (Hospitalization, Congenital Anomaly, Other)
  Sender: FDA-Public Use
  Company Number: FR-BRISTOL-MYERS SQUIBB COMPANY-10026151

PATIENT
  Age: 0 Day
  Weight: 3.1 kg

DRUGS (6)
  1. ZERIT [Suspect]
     Active Substance: STAVUDINE
     Indication: PROPHYLAXIS
     Dosage: 3 MG, BID
     Route: 048
     Dates: start: 19981105
  2. EPIVIR [Suspect]
     Active Substance: LAMIVUDINE
     Indication: PROPHYLAXIS
     Dosage: 6 MG, BID
     Route: 065
     Dates: start: 19981105
  3. RETROVIR [Concomitant]
     Active Substance: ZIDOVUDINE
     Indication: PRODUCT USED FOR UNKNOWN INDICATION
     Dosage: 1 DF, UNK
     Route: 064
  4. ZERIT [Suspect]
     Active Substance: STAVUDINE
     Indication: PRODUCT USED FOR UNKNOWN INDICATION
     Dosage: UNK
     Route: 064
  5. EPIVIR [Suspect]
     Active Substance: LAMIVUDINE
     Indication: PRODUCT USED FOR UNKNOWN INDICATION
     Dosage: UNK
     Route: 064
  6. CRIXIVAN [Concomitant]
     Active Substance: INDINAVIR SULFATE
     Indication: PRODUCT USED FOR UNKNOWN INDICATION
     Dosage: UNK
     Route: 064

REACTIONS (11)
  - Granulocytopenia [Recovering/Resolving]
  - Foetal exposure during pregnancy [Recovered/Resolved]
  - Congenital pulmonary valve disorder [Unknown]
  - Blood bilirubin increased [Unknown]
  - Diarrhoea haemorrhagic [Unknown]
  - Blood potassium increased [Unknown]
  - Anaemia [Recovering/Resolving]
  - Blood lactic acid increased [Not Recovered/Not Resolved]
  - Speech disorder [Unknown]
  - Nasal obstruction [Unknown]
  - Hypertriglyceridaemia [Not Recovered/Not Resolved]

NARRATIVE: CASE EVENT DATE: 19981105
